FAERS Safety Report 7592868-5 (Version None)
Quarter: 2011Q3

REPORT INFORMATION
  Report Type: 
  Country: None (occurrence: None)
  Receive Date: 20110706
  Receipt Date: 20110624
  Transmission Date: 20111222
  Serious: Yes (Hospitalization)
  Sender: FDA-Public Use
  Company Number: US-SANOFI-AVENTIS-2011SA042176

PATIENT
  Sex: Female

DRUGS (2)
  1. SOLOSTAR [Suspect]
  2. LANTUS [Suspect]
     Dosage: DOSE:32 UNIT(S)
     Route: 058

REACTIONS (2)
  - MALAISE [None]
  - SURGERY [None]
